FAERS Safety Report 8761925 (Version 1)
Quarter: 2012Q4

REPORT INFORMATION
  Report Type: 
  Country: BR (occurrence: BR)
  Receive Date: 20120830
  Receipt Date: 20120830
  Transmission Date: 20130627
  Serious: Yes (Other)
  Sender: FDA-Public Use
  Company Number: CHPA2012BR019029

PATIENT
  Sex: Female
  Weight: 85 kg

DRUGS (1)
  1. CIBALENAA [Suspect]
     Indication: HEADACHE
     Dosage: Unk, From about 50 years ago
     Route: 048

REACTIONS (9)
  - Breast cancer [Recovered/Resolved]
  - Spinal osteoarthritis [Not Recovered/Not Resolved]
  - Spinal pain [Not Recovered/Not Resolved]
  - Back pain [Not Recovered/Not Resolved]
  - Hypertension [Recovered/Resolved]
  - Insomnia [Recovered/Resolved]
  - Drug ineffective [Unknown]
  - Headache [None]
  - Drug effect increased [None]
